FAERS Safety Report 18365967 (Version 47)
Quarter: 2025Q4

REPORT INFORMATION
  Report Type: Spontaneous
  Country: US (occurrence: US)
  Receive Date: 20201009
  Receipt Date: 20251203
  Transmission Date: 20260117
  Serious: Yes (Other)
  Sender: PFIZER
  Company Number: US-PFIZER INC-2020385940

PATIENT
  Age: 51 Year
  Sex: Female
  Weight: 54.43 kg

DRUGS (17)
  1. PREMARIN [Suspect]
     Active Substance: ESTROGENS, CONJUGATED
     Indication: Hormone replacement therapy
     Dosage: UNK
     Dates: start: 1980
  2. PREMARIN [Suspect]
     Active Substance: ESTROGENS, CONJUGATED
     Dosage: 1.25 MG
  3. PREMARIN [Suspect]
     Active Substance: ESTROGENS, CONJUGATED
     Dosage: UNK
  4. PREMARIN [Suspect]
     Active Substance: ESTROGENS, CONJUGATED
     Dosage: 1.25 MG, 1X/DAY, FOUR HOURS AWAY FROM HAVE EATEN ANY FOOD AND FOUR HOURS APART FROM HER SYNTHROID
     Route: 048
  5. PREMARIN [Suspect]
     Active Substance: ESTROGENS, CONJUGATED
     Dosage: 1.25 MG, DAILY
     Route: 048
  6. PREMARIN [Suspect]
     Active Substance: ESTROGENS, CONJUGATED
     Dosage: 1.25 MG, 1X/DAY
     Dates: start: 1985
  7. PREMARIN [Suspect]
     Active Substance: ESTROGENS, CONJUGATED
     Dosage: 1.25 MG, 1X/DAY
  8. PREMARIN [Suspect]
     Active Substance: ESTROGENS, CONJUGATED
     Dosage: UNK
     Dates: end: 20231018
  9. PREMARIN [Suspect]
     Active Substance: ESTROGENS, CONJUGATED
     Dosage: UNK
     Dates: start: 20240103
  10. PREMARIN [Suspect]
     Active Substance: ESTROGENS, CONJUGATED
     Dosage: UNK
  11. PREMARIN [Suspect]
     Active Substance: ESTROGENS, CONJUGATED
     Dosage: 1.25 MG
  12. PREMARIN [Suspect]
     Active Substance: ESTROGENS, CONJUGATED
     Dosage: 1.25 MG
     Route: 048
  13. SYNTHROID [Concomitant]
     Active Substance: LEVOTHYROXINE SODIUM
     Indication: Hypothyroidism
     Dosage: 100MCG DAILY WITH ONE DAY OFF (TAKES IT SIX TIMES A WEEK)
     Route: 048
     Dates: start: 1980
  14. PREMARIN [Concomitant]
     Active Substance: ESTROGENS, CONJUGATED
     Dosage: UNK
  15. DIPHENHYDRAMINE [Concomitant]
     Active Substance: DIPHENHYDRAMINE
     Indication: Hypersensitivity
     Dosage: UNK
  16. HYDROCHLORIDE FENFLURAMINE [Concomitant]
     Indication: Hypersensitivity
     Dosage: 25 MG
  17. ROSUVASTATIN [Concomitant]
     Active Substance: ROSUVASTATIN
     Dosage: 5 MG, 1X/DAY(5 MILLIGRAMS, TABLET, ONCE BY MOUTH DAILY AT BED TIME)
     Route: 048

REACTIONS (29)
  - Renal disorder [Not Recovered/Not Resolved]
  - Drug ineffective [Not Recovered/Not Resolved]
  - Product prescribing error [Unknown]
  - Cognitive disorder [Unknown]
  - Circadian rhythm sleep disorder [Not Recovered/Not Resolved]
  - Blood testosterone abnormal [Unknown]
  - Blood oestrogen abnormal [Not Recovered/Not Resolved]
  - Body height decreased [Unknown]
  - Abdominal pain upper [Unknown]
  - Lactose intolerance [Unknown]
  - Soliloquy [Unknown]
  - Illness [Not Recovered/Not Resolved]
  - Oestrone increased [Unknown]
  - Skin disorder [Not Recovered/Not Resolved]
  - Dyspepsia [Not Recovered/Not Resolved]
  - Alopecia [Not Recovered/Not Resolved]
  - Depressed mood [Unknown]
  - Insomnia [Unknown]
  - Somnolence [Unknown]
  - Burning sensation [Unknown]
  - Pruritus [Unknown]
  - Hypertonic bladder [Unknown]
  - Behaviour disorder [Unknown]
  - Screaming [Unknown]
  - Product physical issue [Unknown]
  - Poor quality product administered [Unknown]
  - Product shape issue [Unknown]
  - Product colour issue [Unknown]
  - Product size issue [Unknown]

NARRATIVE: CASE EVENT DATE: 20030101
